FAERS Safety Report 9137850 (Version 3)
Quarter: 2013Q4

REPORT INFORMATION
  Report Type: Report from Study
  Country: BR (occurrence: BR)
  Receive Date: 20130304
  Receipt Date: 20131217
  Transmission Date: 20140711
  Serious: Yes (Hospitalization)
  Sender: FDA-Public Use
  Company Number: PHHY2013BR018558

PATIENT
  Sex: Female
  Weight: 74 kg

DRUGS (6)
  1. GILENYA [Suspect]
     Indication: MULTIPLE SCLEROSIS
     Dosage: 0.5 MG, DAILY
     Route: 048
     Dates: start: 201209, end: 20131102
  2. ENALAPRIL [Concomitant]
     Indication: HYPERTENSION
     Dosage: 20 MG, BID
  3. PURAN T4 [Concomitant]
     Indication: HYPOTHYROIDISM
     Dosage: 5 UG, UNK
  4. ANALGESICS [Concomitant]
  5. SIMVASTATIN [Concomitant]
  6. DEFLAZACORT [Concomitant]

REACTIONS (1)
  - Leukaemia recurrent [Not Recovered/Not Resolved]
